FAERS Safety Report 4612709-5 (Version None)
Quarter: 2005Q1

REPORT INFORMATION
  Report Type: 
  Country: None (occurrence: None)
  Receive Date: 20050318
  Receipt Date: 20050124
  Transmission Date: 20050727
  Serious: Yes (Life-Threatening, Other)
  Sender: FDA-Public Use
  Company Number: GBWYE364724JAN05

PATIENT
  Sex: Female

DRUGS (11)
  1. ENBREL [Suspect]
     Indication: RHEUMATOID ARTHRITIS
     Dosage: UNKNOWN
     Route: 058
     Dates: start: 20041222, end: 20050117
  2. METHOTREXATE [Suspect]
     Dosage: UNKNOWN
     Route: 048
     Dates: start: 20040101
  3. RELIFEX [Suspect]
     Route: 048
     Dates: start: 20040102, end: 20050123
  4. FOLIC ACID [Concomitant]
     Dates: start: 20040101
  5. FERROUS SULFATE TAB [Concomitant]
     Dates: start: 20000101
  6. CALCIUM CARBONATE [Concomitant]
     Dates: start: 19971217
  7. COLECALCIFEROL [Concomitant]
     Dates: start: 19971217
  8. FOSAMAX [Concomitant]
     Dates: start: 20010406
  9. CO-CODAMOL [Concomitant]
     Dates: start: 20040608
  10. PANTOPRAZOLE [Concomitant]
     Dates: start: 20041001
  11. PREDNISOLONE [Concomitant]
     Dates: start: 20050218

REACTIONS (2)
  - LUNG DISORDER [None]
  - LUNG INFECTION [None]
